FAERS Safety Report 7866794-8 (Version None)
Quarter: 2011Q4

REPORT INFORMATION
  Report Type: 
  Country: None (occurrence: None)
  Receive Date: 20111028
  Receipt Date: 20110822
  Transmission Date: 20120403
  Serious: No
  Sender: FDA-Public Use
  Company Number: US-GLAXOSMITHKLINE-A0941856A

PATIENT
  Age: 69 Year
  Sex: Female

DRUGS (4)
  1. ADVAIR DISKUS 100/50 [Suspect]
     Indication: CHRONIC OBSTRUCTIVE PULMONARY DISEASE
     Dosage: 1PUFF TWICE PER DAY
     Route: 055
     Dates: start: 20110801
  2. IPRATROPIUM BROMIDE [Concomitant]
     Route: 055
  3. ALBUTEROL [Concomitant]
     Route: 055
  4. MUCINEX [Concomitant]

REACTIONS (5)
  - WHEEZING [None]
  - DRUG INEFFECTIVE [None]
  - SPUTUM DECREASED [None]
  - COUGH [None]
  - DYSPNOEA [None]
